FAERS Safety Report 9061209 (Version 1)
Quarter: 2013Q1

REPORT INFORMATION
  Report Type: Spontaneous
  Country: TR (occurrence: TR)
  Receive Date: 20130204
  Receipt Date: 20130204
  Transmission Date: 20140127
  Serious: Yes (Hospitalization)
  Sender: FDA-Public Use
  Company Number: TR-NOVOPROD-369600

PATIENT
  Sex: Male
  Weight: 3.1 kg

DRUGS (2)
  1. NOVORAPID FLEXPEN [Suspect]
     Indication: GESTATIONAL DIABETES
     Dosage: 12 U, QD
     Route: 064
     Dates: start: 20120515
  2. INSULATARD NPH HUMAN [Suspect]
     Indication: GESTATIONAL DIABETES
     Dosage: 4 U, QD
     Route: 064
     Dates: start: 20120515

REACTIONS (2)
  - Respiration abnormal [Recovered/Resolved]
  - Foetal exposure during pregnancy [Recovered/Resolved]
